FAERS Safety Report 7998104-X (Version None)
Quarter: 2011Q4

REPORT INFORMATION
  Report Type: 
  Country: None (occurrence: None)
  Receive Date: 20111221
  Receipt Date: 20110131
  Transmission Date: 20120403
  Serious: No
  Sender: FDA-Public Use
  Company Number: US-GLAXOSMITHKLINE-A0910715A

PATIENT
  Age: 67 Year
  Sex: Male

DRUGS (10)
  1. INSULIN 50/50 [Concomitant]
  2. LISINOPRIL [Concomitant]
  3. LIPITOR [Concomitant]
  4. GLUMETZA [Concomitant]
  5. TOPROL-XL [Concomitant]
  6. LOVAZA [Suspect]
     Indication: BLOOD TRIGLYCERIDES INCREASED
     Dosage: 2CAP TWICE PER DAY
     Route: 048
     Dates: start: 20091101, end: 20101101
  7. SYMLIN [Concomitant]
  8. RANITIDINE [Concomitant]
  9. PLAVIX [Concomitant]
  10. ALLOPURINOL [Concomitant]

REACTIONS (4)
  - ERUCTATION [None]
  - DYSGEUSIA [None]
  - ENERGY INCREASED [None]
  - WEIGHT DECREASED [None]
